FAERS Safety Report 6201836-7 (Version None)
Quarter: 2009Q2

REPORT INFORMATION
  Report Type: 
  Country: None (occurrence: None)
  Receive Date: 20090526
  Receipt Date: 20090519
  Transmission Date: 20091009
  Serious: Yes (Hospitalization)
  Sender: FDA-Public Use
  Company Number: US-ASTRAZENECA-2009UW12725

PATIENT
  Age: 24 Year
  Sex: Female
  Weight: 66.2 kg

DRUGS (2)
  1. SEROQUEL [Suspect]
     Indication: BIPOLAR DISORDER
     Route: 048
     Dates: start: 20090510, end: 20090517
  2. ARTANE [Concomitant]
     Indication: EYE DISORDER

REACTIONS (4)
  - EYE DISORDER [None]
  - EYE PAIN [None]
  - MYDRIASIS [None]
  - URINARY RETENTION [None]
